FAERS Safety Report 16785368 (Version 1)
Quarter: 2019Q3

REPORT INFORMATION
  Report Type: Spontaneous
  Country: US (occurrence: US)
  Receive Date: 20190717
  Receipt Date: 20190717
  Transmission Date: 20191005
  Serious: Yes (Disabling)
  Sender: FDA-Public Use
  Company Number: None

PATIENT
  Age: 57 Year
  Sex: Female
  Weight: 67.95 kg

DRUGS (16)
  1. NARCAN [Concomitant]
     Active Substance: NALOXONE HYDROCHLORIDE
  2. DILTIAZEM HCL [Concomitant]
     Active Substance: DILTIAZEM HYDROCHLORIDE
  3. HYDROCODONE ACET [Concomitant]
  4. BALCOFEN [Concomitant]
     Active Substance: BACLOFEN
  5. CARVEDILOL. [Concomitant]
     Active Substance: CARVEDILOL
  6. TRAZODONE [Concomitant]
     Active Substance: TRAZODONE HYDROCHLORIDE
  7. FLAXSEED OIL-OMEGA 3 OIL [Concomitant]
  8. TAMSULOSIN [Concomitant]
     Active Substance: TAMSULOSIN
  9. NITROGLYCERIN. [Concomitant]
     Active Substance: NITROGLYCERIN
  10. FAMOTIDINE. [Concomitant]
     Active Substance: FAMOTIDINE
  11. LATUDA [Suspect]
     Active Substance: LURASIDONE HYDROCHLORIDE
     Indication: DELUSION
     Route: 048
     Dates: start: 201906
  12. LINIMOPRIL [Concomitant]
  13. AMTRIPLINE [Concomitant]
  14. DIAZEPAM. [Concomitant]
     Active Substance: DIAZEPAM
  15. DOXAZOSIN MESYLATE. [Concomitant]
     Active Substance: DOXAZOSIN MESYLATE
  16. BENTROPINE MESYLATE [Concomitant]

REACTIONS (21)
  - Irritability [None]
  - Gait disturbance [None]
  - Restlessness [None]
  - Muscle rigidity [None]
  - Fatigue [None]
  - Depression [None]
  - Respiration abnormal [None]
  - Heart rate [None]
  - Asthenia [None]
  - Blood pressure abnormal [None]
  - Confusional state [None]
  - Dyskinesia [None]
  - Insomnia [None]
  - Mania [None]
  - Mood altered [None]
  - Anger [None]
  - Hyperhidrosis [None]
  - Anxiety [None]
  - Pyrexia [None]
  - Tongue movement disturbance [None]
  - Nausea [None]

NARRATIVE: CASE EVENT DATE: 20190502
